FAERS Safety Report 14860280 (Version 4)
Quarter: 2018Q2

REPORT INFORMATION
  Report Type: Report from Study
  Country: US (occurrence: US)
  Receive Date: 20180508
  Receipt Date: 20180528
  Transmission Date: 20180711
  Serious: No
  Sender: FDA-Public Use
  Company Number: PHEH2018US017231

PATIENT
  Sex: Female
  Weight: 49.89 kg

DRUGS (1)
  1. GLATOPA [Suspect]
     Active Substance: GLATIRAMER ACETATE
     Indication: MULTIPLE SCLEROSIS
     Dosage: 20 MG, QD ROTATES SITES
     Route: 065

REACTIONS (3)
  - Injection site reaction [Not Recovered/Not Resolved]
  - Injection site nodule [Unknown]
  - Injection site pain [Unknown]
